FAERS Safety Report 6664262-2 (Version None)
Quarter: 2010Q2

REPORT INFORMATION
  Report Type: 
  Country: None (occurrence: None)
  Receive Date: 20100401
  Receipt Date: 20100323
  Transmission Date: 20101027
  Serious: Yes (Hospitalization)
  Sender: FDA-Public Use
  Company Number: PHHY2010RU18034

PATIENT
  Age: 55 Year
  Sex: Female

DRUGS (1)
  1. MIACALCIN [Suspect]
     Indication: PROPHYLAXIS

REACTIONS (2)
  - BLOOD PRESSURE INCREASED [None]
  - HOT FLUSH [None]
